FAERS Safety Report 16812426 (Version 1)
Quarter: 2019Q3

REPORT INFORMATION
  Report Type: Spontaneous
  Country: US (occurrence: US)
  Receive Date: 20190916
  Receipt Date: 20190916
  Transmission Date: 20191005
  Serious: No
  Sender: FDA-Public Use
  Company Number: PHEH2019US037703

PATIENT
  Sex: Female

DRUGS (1)
  1. BIMATOPROST SANDOZ [Suspect]
     Active Substance: BIMATOPROST
     Indication: PRODUCT USED FOR UNKNOWN INDICATION
     Dosage: 2-3 DRP, QD
     Route: 065

REACTIONS (1)
  - Madarosis [Unknown]
